FAERS Safety Report 24710562 (Version 1)
Quarter: 2024Q4

REPORT INFORMATION
  Report Type: Spontaneous
  Country: RU (occurrence: RU)
  Receive Date: 20241209
  Receipt Date: 20241209
  Transmission Date: 20250115
  Serious: Yes (Death, Other)
  Sender: RECORDATI
  Company Number: RU-RECORDATI RARE DISEASE INC.-2022000823

PATIENT

DRUGS (10)
  1. DACTINOMYCIN [Suspect]
     Active Substance: DACTINOMYCIN
     Indication: Ovarian germ cell choriocarcinoma
     Dosage: 5 CYCLES UNK
     Route: 042
     Dates: start: 2020
  2. DACTINOMYCIN [Suspect]
     Active Substance: DACTINOMYCIN
     Dosage: 4 ADDITIONAL CYCLES UNK
  3. ETOPOSIDE [Suspect]
     Active Substance: ETOPOSIDE
     Indication: Ovarian germ cell choriocarcinoma
     Dosage: 5 CYCLES UNK
     Route: 042
     Dates: start: 2020
  4. ETOPOSIDE [Suspect]
     Active Substance: ETOPOSIDE
     Dosage: 4 CYCLES
  5. METHOTREXATE [Suspect]
     Active Substance: METHOTREXATE
     Indication: Ovarian germ cell choriocarcinoma
     Dosage: 5 CYCLES
     Route: 042
     Dates: start: 2020
  6. METHOTREXATE [Suspect]
     Active Substance: METHOTREXATE
     Dosage: 4 CYCLES
  7. CYCLOPHOSPHAMIDE [Suspect]
     Active Substance: CYCLOPHOSPHAMIDE
     Indication: Ovarian germ cell choriocarcinoma
     Dosage: 5 CYCLES
     Route: 042
     Dates: start: 2020
  8. CYCLOPHOSPHAMIDE [Suspect]
     Active Substance: CYCLOPHOSPHAMIDE
     Dosage: 4 CYCLES
  9. VINCRISTINE [Suspect]
     Active Substance: VINCRISTINE
     Indication: Ovarian germ cell choriocarcinoma
     Dosage: 5 CYCLES
     Route: 042
     Dates: start: 2020
  10. VINCRISTINE [Suspect]
     Active Substance: VINCRISTINE
     Dosage: 4 CYCLES

REACTIONS (9)
  - Death [Fatal]
  - Metastases to liver [Unknown]
  - Ascites [Unknown]
  - Human chorionic gonadotropin increased [Unknown]
  - Neutropenia [Unknown]
  - Anaemia [Unknown]
  - Peripheral sensory neuropathy [Unknown]
  - Drug resistance [Recovered/Resolved]
  - Off label use [Recovered/Resolved]

NARRATIVE: CASE EVENT DATE: 20200101
